FAERS Safety Report 4945838-7 (Version None)
Quarter: 2006Q1

REPORT INFORMATION
  Report Type: 
  Country: None (occurrence: None)
  Receive Date: 20060316
  Receipt Date: 20060209
  Transmission Date: 20060701
  Serious: Yes (Death, Other)
  Sender: FDA-Public Use
  Company Number: 2006GB00244

PATIENT
  Age: 58 Year
  Sex: Male
  Weight: 95 kg

DRUGS (5)
  1. PROPOFOL [Suspect]
     Indication: ANAESTHESIA
     Route: 042
     Dates: start: 20060202
  2. REMIFENTANIL [Suspect]
     Indication: ANAESTHESIA
     Dosage: 0.3 MCG/KG/MIN
     Route: 042
     Dates: start: 20060202
  3. SUXAMETHONIUM [Suspect]
     Indication: ANAESTHESIA
     Route: 042
     Dates: start: 20060202
  4. IRBESARTAN [Concomitant]
     Indication: HYPERTENSION
     Route: 048
     Dates: start: 20000101
  5. LANSOPRAZOLE [Concomitant]
     Indication: GASTROOESOPHAGEAL REFLUX DISEASE
     Route: 048

REACTIONS (4)
  - BRADYCARDIA [None]
  - CARDIAC ARREST [None]
  - DEATH [None]
  - ELECTROCARDIOGRAM QRS COMPLEX ABNORMAL [None]
